FAERS Safety Report 21422814 (Version 1)
Quarter: 2022Q4

REPORT INFORMATION
  Report Type: Spontaneous
  Country: CZ (occurrence: CZ)
  Receive Date: 20221007
  Receipt Date: 20221007
  Transmission Date: 20230112
  Serious: Yes (Death)
  Sender: FDA-Public Use
  Company Number: CZ-ABBVIE-4143816

PATIENT
  Age: 81 Year
  Sex: Male

DRUGS (10)
  1. CARBIDOPA\LEVODOPA [Suspect]
     Active Substance: CARBIDOPA\LEVODOPA
     Indication: Parkinson^s disease
     Dosage: MD13 ML, CD 5.6 ML/HOUR, TD 102.6 ML/DAY
     Route: 050
     Dates: start: 20170328, end: 20220929
  2. CARBIDOPA\LEVODOPA [Suspect]
     Active Substance: CARBIDOPA\LEVODOPA
  3. CIPRALEX [Concomitant]
     Active Substance: ESCITALOPRAM OXALATE
     Indication: Depression
     Route: 048
     Dates: start: 20171109, end: 20220929
  4. Hedonin [Concomitant]
     Indication: Depression
     Dosage: 175 MILLIGRAMS - 175 MILLIGRAMS - 350 MILLIGRAMS
     Route: 048
     Dates: start: 20171109, end: 20220929
  5. PERINDOPRIL ARGININE [Concomitant]
     Active Substance: PERINDOPRIL ARGININE
     Indication: Hypertension
     Route: 048
     Dates: start: 20190827, end: 20220929
  6. ASPIRIN [Concomitant]
     Active Substance: ASPIRIN
     Indication: Thrombosis prophylaxis
     Route: 048
     Dates: start: 20170412, end: 20220929
  7. DONEPEZIL [Concomitant]
     Active Substance: DONEPEZIL
     Indication: Prophylaxis
     Route: 048
     Dates: start: 20191118, end: 20220929
  8. Milgamma [Concomitant]
     Indication: Prophylaxis
     Dosage: 50/250 MICROGRAM
     Route: 048
     Dates: start: 20180814, end: 20220929
  9. MELPERONE HYDROCHLORIDE [Concomitant]
     Active Substance: MELPERONE HYDROCHLORIDE
     Indication: Prophylaxis
     Route: 048
     Dates: start: 20191009, end: 20220929
  10. FOLIC ACID [Concomitant]
     Active Substance: FOLIC ACID
     Indication: Prophylaxis
     Route: 048
     Dates: start: 20180814, end: 20220929

REACTIONS (1)
  - Death [Fatal]

NARRATIVE: CASE EVENT DATE: 20220929
